FAERS Safety Report 16885229 (Version 1)
Quarter: 2019Q4

REPORT INFORMATION
  Report Type: Spontaneous
  Country: US (occurrence: US)
  Receive Date: 20191004
  Receipt Date: 20191004
  Transmission Date: 20200122
  Serious: Yes (Other)
  Sender: FDA-Public Use
  Company Number: US-APOTEX-2019AP023008

PATIENT
  Sex: Male

DRUGS (3)
  1. FLUTICASONE. [Suspect]
     Active Substance: FLUTICASONE
     Indication: OROPHARYNGEAL PAIN
  2. FLUTICASONE. [Suspect]
     Active Substance: FLUTICASONE
     Indication: VIRAL INFECTION
     Dosage: 1 SPRAY EACH NOSTRIL, Q.H.S.
     Route: 045
  3. LISINOPRIL. [Concomitant]
     Active Substance: LISINOPRIL
     Indication: BLOOD PRESSURE MEASUREMENT
     Dosage: 2.5 MG, UNK
     Route: 065

REACTIONS (2)
  - Visual impairment [Recovered/Resolved]
  - Hallucination [Recovered/Resolved]
